FAERS Safety Report 5630616-6 (Version None)
Quarter: 2008Q1

REPORT INFORMATION
  Report Type: 
  Country: None (occurrence: None)
  Receive Date: 20080219
  Receipt Date: 20080219
  Transmission Date: 20080703
  Serious: Yes (Hospitalization)
  Sender: FDA-Public Use
  Company Number: None

PATIENT
  Age: 73 Year
  Sex: Male

DRUGS (2)
  1. HEPARIN [Suspect]
     Indication: HIGH FREQUENCY ABLATION
     Dosage: 18000UNITS ONCE IV
     Route: 042
  2. HEPARIN [Suspect]
     Indication: SUPRAVENTRICULAR TACHYCARDIA
     Dosage: 18000UNITS ONCE IV
     Route: 042

REACTIONS (3)
  - GASTRIC HAEMORRHAGE [None]
  - HAEMATEMESIS [None]
  - HAEMORRHAGE [None]
